FAERS Safety Report 9999194 (Version 1)
Quarter: 2014Q1

REPORT INFORMATION
  Report Type: Spontaneous
  Country: US (occurrence: None)
  Receive Date: 20140311
  Receipt Date: 20140311
  Transmission Date: 20141002
  Serious: Yes (Disabling, Other)
  Sender: FDA-Public Use
  Company Number: None

PATIENT
  Age: 20 Year
  Sex: Female
  Weight: 58.97 kg

DRUGS (1)
  1. ADVIL PM [Suspect]
     Indication: INSOMNIA

REACTIONS (11)
  - Anxiety [None]
  - Depersonalisation [None]
  - Derealisation [None]
  - Visual acuity reduced [None]
  - Pain [None]
  - Depression [None]
  - Hyperhidrosis [None]
  - Dizziness [None]
  - Disturbance in attention [None]
  - Weight increased [None]
  - General physical health deterioration [None]
